FAERS Safety Report 13709703 (Version 1)
Quarter: 2017Q3

REPORT INFORMATION
  Report Type: Spontaneous
  Country: FR (occurrence: FR)
  Receive Date: 20170703
  Receipt Date: 20170703
  Transmission Date: 20171127
  Serious: Yes (Hospitalization)
  Sender: FDA-Public Use
  Company Number: FR-SUN PHARMACEUTICAL INDUSTRIES LTD-2016R1-115664

PATIENT
  Age: 57 Year
  Sex: Male

DRUGS (3)
  1. ASPIRIN. [Suspect]
     Active Substance: ASPIRIN
     Indication: ANGIOPATHY
     Dosage: 75 MG, DAILY
     Route: 065
  2. HEPARIN [Suspect]
     Active Substance: HEPARIN SODIUM
     Indication: THROMBOSIS PROPHYLAXIS
     Dosage: 15 IU/KG, Q1H
     Route: 065
  3. HEPARIN [Suspect]
     Active Substance: HEPARIN SODIUM
     Indication: PROPHYLAXIS

REACTIONS (9)
  - Arterial haemorrhage [Recovering/Resolving]
  - Haemothorax [Recovering/Resolving]
  - Haemoglobin decreased [Recovering/Resolving]
  - Pleural effusion [Recovering/Resolving]
  - Postoperative respiratory distress [Recovering/Resolving]
  - Shock [Recovering/Resolving]
  - Orthopnoea [Recovering/Resolving]
  - Pallor [Recovering/Resolving]
  - Agitation [Recovering/Resolving]
